FAERS Safety Report 7825369-7 (Version None)
Quarter: 2011Q4

REPORT INFORMATION
  Report Type: 
  Country: None (occurrence: None)
  Receive Date: 20111019
  Receipt Date: 20111013
  Transmission Date: 20120403
  Serious: Yes (Congenital Anomaly)
  Sender: FDA-Public Use
  Company Number: PHHY2011US90227

PATIENT

DRUGS (3)
  1. CARBAMAZEPINE [Suspect]
     Dosage: MATERNAL DOSE : 800 MG AT LAST MENSTRUAL PERIOD
     Route: 064
  2. CARBAMAZEPINE [Suspect]
     Dosage: MATERNAL DOSE : 1200 MG AT AT 9 WEEKS OF PREGNANCY
     Route: 064
  3. LAMOTRIGINE [Suspect]
     Dosage: MATERNAL DOSE: 400 MG
     Route: 064

REACTIONS (3)
  - ATRIAL SEPTAL DEFECT [None]
  - MATERNAL EXPOSURE DURING PREGNANCY [None]
  - CARDIAC MURMUR [None]
